FAERS Safety Report 9349941 (Version 1)
Quarter: 2013Q2

REPORT INFORMATION
  Report Type: Spontaneous
  Country: DE (occurrence: DE)
  Receive Date: 20130614
  Receipt Date: 20130614
  Transmission Date: 20140414
  Serious: Yes (Congenital Anomaly)
  Sender: FDA-Public Use
  Company Number: PHHY2013DE059243

PATIENT
  Sex: Female
  Weight: 3.63 kg

DRUGS (4)
  1. METHYLPHENIDATE [Suspect]
     Indication: DEPRESSION
     Dosage: 40 MG, DAILY
     Route: 064
     Dates: start: 20071203
  2. DIPIPERON [Suspect]
     Indication: PSYCHOTIC DISORDER
     Dosage: 40 MG, DAILY
     Route: 064
     Dates: start: 20071203
  3. FLUOXETINE [Suspect]
     Indication: DEPRESSION
     Dosage: 80 MG, DAILY
     Route: 064
     Dates: start: 20071203
  4. FOLIO FORTE [Concomitant]
     Indication: PROPHYLAXIS OF NEURAL TUBE DEFECT
     Dosage: 0.8 MG, DAILY

REACTIONS (6)
  - Patent ductus arteriosus [Recovered/Resolved]
  - Atrial septal defect [Recovered/Resolved]
  - Neonatal respiratory distress syndrome [Recovered/Resolved]
  - Hypoglycaemia neonatal [Recovered/Resolved]
  - Bradycardia [Unknown]
  - Apnoea [Unknown]
